FAERS Safety Report 13738682 (Version 2)
Quarter: 2018Q2

REPORT INFORMATION
  Report Type: Report from Study
  Country: US (occurrence: US)
  Receive Date: 20170710
  Receipt Date: 20180627
  Transmission Date: 20180711
  Serious: No
  Sender: FDA-Public Use
  Company Number: US-SAOL THERAPEUTICS-2017SAO00388

PATIENT
  Age: 69 Year
  Sex: Male

DRUGS (17)
  1. BACLOFEN. [Suspect]
     Active Substance: BACLOFEN
     Dosage: 20.02 ?G, \DAY
     Route: 037
     Dates: end: 20140714
  2. BACLOFEN. [Suspect]
     Active Substance: BACLOFEN
     Dosage: 18.04 ?G, \DAY
     Route: 037
     Dates: start: 20141118, end: 20141124
  3. DILAUDID [Suspect]
     Active Substance: HYDROMORPHONE HYDROCHLORIDE
     Dosage: 0.03609 MG, \DAY
     Route: 037
     Dates: start: 20141118, end: 20141124
  4. BACLOFEN. [Suspect]
     Active Substance: BACLOFEN
     Dosage: 24.97 ?G, \DAY - MAX
     Route: 037
     Dates: start: 20140714
  5. DILAUDID [Suspect]
     Active Substance: HYDROMORPHONE HYDROCHLORIDE
     Dosage: 0.05597 MG, \DAY - MAX
     Route: 037
     Dates: start: 20141124
  6. BACLOFEN. [Suspect]
     Active Substance: BACLOFEN
     Dosage: 19.01 ?G, \DAY
     Route: 037
     Dates: start: 20140714
  7. BACLOFEN. [Suspect]
     Active Substance: BACLOFEN
     Dosage: 22.98 ?G, \DAY
     Route: 037
     Dates: start: 20140922
  8. BACLOFEN. [Suspect]
     Active Substance: BACLOFEN
     Dosage: 30.00 ?G, \DAY - MAX
     Route: 037
     Dates: start: 20141118, end: 20141124
  9. BACLOFEN. [Suspect]
     Active Substance: BACLOFEN
     Dosage: 54.93 ?G, \DAY - MAX
     Route: 037
     Dates: end: 20140922
  10. BACLOFEN. [Suspect]
     Active Substance: BACLOFEN
     Dosage: 42.85 ?G, \DAY - MAX
     Route: 037
     Dates: start: 20140922
  11. DILAUDID [Suspect]
     Active Substance: HYDROMORPHONE HYDROCHLORIDE
     Dosage: 0.05999 MG, \DAY - MAX
     Route: 037
     Dates: start: 20141118, end: 20141124
  12. BACLOFEN. [Suspect]
     Active Substance: BACLOFEN
     Dosage: 20.02 ?G, \DAY
     Route: 037
     Dates: start: 20141124
  13. DILAUDID [Suspect]
     Active Substance: HYDROMORPHONE HYDROCHLORIDE
     Dosage: 0.04004 MG, \DAY
     Route: 037
     Dates: start: 20141124
  14. COMPOUNDED BACLOFEN [Suspect]
     Active Substance: BACLOFEN
     Route: 037
  15. BACLOFEN. [Suspect]
     Active Substance: BACLOFEN
     Dosage: 25.07 ?G, \DAY
     Route: 037
     Dates: end: 20140922
  16. BACLOFEN. [Suspect]
     Active Substance: BACLOFEN
     Dosage: 25.97 ?G, \DAY - MAX
     Route: 037
     Dates: end: 20140714
  17. BACLOFEN. [Suspect]
     Active Substance: BACLOFEN
     Dosage: 27.99 ?G, \DAY - MAX
     Route: 037
     Dates: start: 20141124

REACTIONS (4)
  - Paraesthesia [Recovered/Resolved]
  - Fatigue [Recovered/Resolved]
  - Asthenia [Recovered/Resolved]
  - Somnolence [Recovered/Resolved]

NARRATIVE: CASE EVENT DATE: 20140714
